FAERS Safety Report 18423667 (Version 1)
Quarter: 2020Q4

REPORT INFORMATION
  Report Type: Spontaneous
  Country: GB (occurrence: GB)
  Receive Date: 20201024
  Receipt Date: 20201024
  Transmission Date: 20210114
  Serious: Yes (Death, Life-Threatening, Hospitalization, Other)
  Sender: FDA-Public Use
  Company Number: GB-MACLEODS PHARMACEUTICALS US LTD-MAC2020028708

PATIENT

DRUGS (1)
  1. METFORMIN [Suspect]
     Active Substance: METFORMIN HYDROCHLORIDE
     Indication: TYPE 2 DIABETES MELLITUS
     Dosage: UNK
     Route: 065

REACTIONS (12)
  - Haemoglobin decreased [Unknown]
  - Lactic acidosis [Unknown]
  - Condition aggravated [Unknown]
  - Intentional overdose [Unknown]
  - Metabolic acidosis [Unknown]
  - Depressed level of consciousness [Unknown]
  - Hypotension [Unknown]
  - Circulatory collapse [Unknown]
  - Hyperventilation [Unknown]
  - Agitation [Unknown]
  - Confusional state [Unknown]
  - Multiple organ dysfunction syndrome [Fatal]
